FAERS Safety Report 20723978 (Version 6)
Quarter: 2022Q3

REPORT INFORMATION
  Report Type: Report from Study
  Country: LB (occurrence: LB)
  Receive Date: 20220419
  Receipt Date: 20220810
  Transmission Date: 20221027
  Serious: Yes (Other)
  Sender: FDA-Public Use
  Company Number: LB-NOVARTISPH-NVSC2022LB084059

PATIENT
  Age: 19 Year
  Sex: Female

DRUGS (4)
  1. HYRIMOZ [Suspect]
     Active Substance: ADALIMUMAB-ADAZ
     Indication: Crohn^s disease
     Dosage: 40 MG
     Route: 058
     Dates: start: 202110, end: 202203
  2. CORTISONE [Concomitant]
     Active Substance: CORTISONE
     Indication: Crohn^s disease
     Dosage: 20 MG
     Route: 048
     Dates: start: 202204
  3. LOCID [Concomitant]
     Indication: Crohn^s disease
     Dosage: 60 MG
     Route: 048
     Dates: start: 202204
  4. CALCIUM\VITAMIN D [Concomitant]
     Active Substance: CALCIUM\VITAMIN D
     Indication: Crohn^s disease
     Dosage: UNK
     Route: 048
     Dates: start: 202204

REACTIONS (9)
  - Osteitis deformans [Not Recovered/Not Resolved]
  - Crohn^s disease [Not Recovered/Not Resolved]
  - Tuberculosis [Recovering/Resolving]
  - Bronchitis [Recovering/Resolving]
  - Pyrexia [Recovering/Resolving]
  - Dyspnoea [Not Recovered/Not Resolved]
  - Fatigue [Not Recovered/Not Resolved]
  - Malaise [Not Recovered/Not Resolved]
  - Abdominal pain [Recovering/Resolving]

NARRATIVE: CASE EVENT DATE: 20220405
